FAERS Safety Report 6081622-1 (Version None)
Quarter: 2009Q1

REPORT INFORMATION
  Report Type: 
  Country: None (occurrence: None)
  Receive Date: 20090213
  Receipt Date: 20090204
  Transmission Date: 20090719
  Serious: Yes (Hospitalization)
  Sender: FDA-Public Use
  Company Number: GXKR2009ES01545

PATIENT
  Age: 14 Year
  Sex: Female

DRUGS (6)
  1. SALBUTAMOL (NGX) (SALBUTAMOL) UNKNOWN [Suspect]
     Indication: HYPERKALAEMIA
  2. SPIRONOLACTONE [Suspect]
  3. ACE INHIBITOR NOS (NO INGREDIENTS/SUBSTANCES) [Suspect]
  4. IBUPROFEN [Concomitant]
  5. SERUM PHYSIOLOGICAL (SODIUM CHLORIDE) [Concomitant]
  6. FUROSEMIDE [Concomitant]

REACTIONS (5)
  - ACCIDENTAL OVERDOSE [None]
  - ANION GAP INCREASED [None]
  - HYPERKALAEMIA [None]
  - LACTIC ACIDOSIS [None]
  - RENAL FAILURE [None]
